FAERS Safety Report 8202699-0 (Version None)
Quarter: 2012Q1

REPORT INFORMATION
  Report Type: 
  Country: None (occurrence: None)
  Receive Date: 20120312
  Receipt Date: 20120302
  Transmission Date: 20120608
  Serious: Yes (Hospitalization, Other)
  Sender: FDA-Public Use
  Company Number: BR-ASTRAZENECA-2011SE44382

PATIENT
  Age: 71 Year
  Sex: Male
  Weight: 75 kg

DRUGS (7)
  1. ATACAND HCT [Suspect]
     Dosage: 16/2.5 MG HALF TABLET DAILY
     Route: 048
     Dates: start: 20110720
  2. SIMVASTATIN [Concomitant]
     Route: 048
     Dates: start: 19950101
  3. ATACAND [Suspect]
     Indication: HYPERTENSION
     Route: 048
     Dates: start: 20010101, end: 20110720
  4. PLAVIX [Concomitant]
     Route: 048
     Dates: start: 19950101
  5. ATENOLOL [Suspect]
     Indication: HYPERTENSION
     Route: 048
     Dates: start: 20010101
  6. ATACAND HCT [Suspect]
     Indication: HYPERTENSION
     Dosage: 16/2.5 MG DAILY
     Route: 048
     Dates: start: 20110720
  7. ASPIRIN PREVENT [Concomitant]
     Route: 048
     Dates: start: 19950101

REACTIONS (7)
  - AORTIC ANEURYSM [None]
  - ARTERIAL OCCLUSIVE DISEASE [None]
  - HYPOTENSION [None]
  - DRUG INEFFECTIVE [None]
  - CORONARY ARTERY OCCLUSION [None]
  - ARTERIOSCLEROSIS CORONARY ARTERY [None]
  - HYPERTENSION [None]
